FAERS Safety Report 14670337 (Version 2)
Quarter: 2018Q2

REPORT INFORMATION
  Report Type: Spontaneous
  Country: US (occurrence: US)
  Receive Date: 20180322
  Receipt Date: 20180622
  Transmission Date: 20180711
  Serious: No
  Sender: FDA-Public Use
  Company Number: US-ADAMAS PHARMACEUTICALS-2018ADA00111

PATIENT
  Age: 68 Year
  Sex: Female

DRUGS (17)
  1. GOCOVRI [Suspect]
     Active Substance: AMANTADINE
     Dosage: 137 MG, 1X/DAY AT BEDTIME
     Route: 048
     Dates: start: 20180130, end: 20180205
  2. CLONAZEPAM. [Concomitant]
     Active Substance: CLONAZEPAM
  3. BIOTIN [Concomitant]
     Active Substance: BIOTIN
  4. CALCIUM [Concomitant]
     Active Substance: CALCIUM
  5. VITAMIN (UNSPECIFIED) [Concomitant]
  6. PRAMIPEXOLE. [Concomitant]
     Active Substance: PRAMIPEXOLE
  7. RYTARY [Concomitant]
     Active Substance: CARBIDOPA\LEVODOPA
  8. Q10 [Concomitant]
  9. VITAMIN B COMPLEX [Concomitant]
     Active Substance: CYANOCOBALAMIN\DEXPANTHENOL\NIACINAMIDE\PYRIDOXINE HYDROCHLORIDE\RIBOFLAVIN 5^-PHOSPHATE SODIUM\THIAMINE HYDROCHLORIDE\VITAMIN B COMPLEX
  10. TURMERIC [Concomitant]
     Active Substance: HERBALS\TURMERIC
  11. GOCOVRI [Suspect]
     Active Substance: AMANTADINE
     Indication: DYSKINESIA
     Dosage: 274 MG, 1X/DAY AT BEDTIME
     Route: 048
     Dates: start: 20180206, end: 201802
  12. CINNAMON CAPSULES [Concomitant]
  13. LECITHIN [Concomitant]
     Active Substance: LECITHIN
  14. ZOLPIDEM [Concomitant]
     Active Substance: ZOLPIDEM\ZOLPIDEM TARTRATE
  15. OSTIOBIFLEX [Concomitant]
  16. GOCOVRI [Suspect]
     Active Substance: AMANTADINE
     Dosage: 137 MG, 1X/DAY
     Dates: start: 201802
  17. SYNTHROID [Concomitant]
     Active Substance: LEVOTHYROXINE SODIUM

REACTIONS (3)
  - Depressed mood [Unknown]
  - Tremor [Not Recovered/Not Resolved]
  - Presyncope [Unknown]

NARRATIVE: CASE EVENT DATE: 201802
